FAERS Safety Report 17939559 (Version 2)
Quarter: 2020Q3

REPORT INFORMATION
  Report Type: Spontaneous
  Country: DE (occurrence: DE)
  Receive Date: 20200625
  Receipt Date: 20200916
  Transmission Date: 20201103
  Serious: Yes (Hospitalization)
  Sender: FDA-Public Use
  Company Number: DE-ROCHE-2630255

PATIENT
  Age: 54 Year
  Sex: Female

DRUGS (15)
  1. PERTUZUMAB. [Suspect]
     Active Substance: PERTUZUMAB
     Indication: PRODUCT USED FOR UNKNOWN INDICATION
     Route: 065
  2. DOCETAXEL. [Suspect]
     Active Substance: DOCETAXEL
     Indication: PRODUCT USED FOR UNKNOWN INDICATION
     Route: 065
  3. CARBOPLATIN. [Suspect]
     Active Substance: CARBOPLATIN
     Indication: PRODUCT USED FOR UNKNOWN INDICATION
     Route: 065
  4. ATOZET [Concomitant]
     Active Substance: ATORVASTATIN CALCIUM\EZETIMIBE
     Dosage: 20/10 MG
  5. RAMIPRIL. [Concomitant]
     Active Substance: RAMIPRIL
     Dosage: 1.5 MG
  6. PERTUZUMAB. [Suspect]
     Active Substance: PERTUZUMAB
     Dosage: ACCORDING TO THE THERAPY PLAN LAST ON 7/JAN/2020 (3RD CYCLE)
     Route: 065
  7. DOCETAXEL. [Suspect]
     Active Substance: DOCETAXEL
     Dosage: ACCORDING TO THE THERAPY PLAN LAST ON 19/DEC/2019 IN THE 2ND CYCLE
     Route: 065
  8. BISOPROLOL [Concomitant]
     Active Substance: BISOPROLOL
     Dosage: 1.25 MG
  9. ALLOPURINOL. [Concomitant]
     Active Substance: ALLOPURINOL
     Dosage: 300 MG
  10. MONTELUKAST [Concomitant]
     Active Substance: MONTELUKAST SODIUM
     Dosage: 10 MG
  11. HERCEPTIN [Suspect]
     Active Substance: TRASTUZUMAB
     Dosage: ACCORDING TO THE THERAPY PLAN, LAST ON 7/JAN/2020 IN THE 3RD CYCLE
     Route: 065
  12. LEVOTHYROXINUM NATRICUM [Concomitant]
     Dosage: 25 UG, 1?0?0?0
  13. HERCEPTIN [Suspect]
     Active Substance: TRASTUZUMAB
     Indication: PRODUCT USED FOR UNKNOWN INDICATION
     Route: 065
  14. CARBOPLATIN. [Suspect]
     Active Substance: CARBOPLATIN
     Dosage: ACCORDING TO THE THERAPY PLAN, LAST ON 9/JAN/2020 IN THE 3RD CYCLE
     Route: 065
  15. PANTOPRAZOL [Concomitant]
     Active Substance: PANTOPRAZOLE SODIUM
     Dosage: 20 MG

REACTIONS (4)
  - Decreased appetite [Unknown]
  - Syncope [Unknown]
  - Diarrhoea [Unknown]
  - General physical health deterioration [Unknown]
